FAERS Safety Report 6192856-X (Version None)
Quarter: 2009Q2

REPORT INFORMATION
  Report Type: 
  Country: None (occurrence: None)
  Receive Date: 20090518
  Receipt Date: 20081125
  Transmission Date: 20091009
  Serious: Yes (Death, Other)
  Sender: FDA-Public Use
  Company Number: US-PFIZER INC-2007074758

PATIENT
  Age: 34 Year
  Sex: Male

DRUGS (1)
  1. CHANTIX [Suspect]
     Indication: SMOKING CESSATION THERAPY
     Dosage: UNK
     Dates: start: 20070101

REACTIONS (8)
  - ABNORMAL DREAMS [None]
  - AGGRESSION [None]
  - ALCOHOL USE [None]
  - DEPRESSED MOOD [None]
  - DYSPHEMIA [None]
  - HALLUCINATION [None]
  - NIGHTMARE [None]
  - PHYSICAL ASSAULT [None]
